FAERS Safety Report 6056034-7 (Version None)
Quarter: 2009Q1

REPORT INFORMATION
  Report Type: 
  Country: None (occurrence: None)
  Receive Date: 20090128
  Receipt Date: 20090114
  Transmission Date: 20090719
  Serious: No
  Sender: FDA-Public Use
  Company Number: US-ELI_LILLY_AND_COMPANY-US200810003649

PATIENT
  Sex: Female

DRUGS (4)
  1. FORTEO [Suspect]
     Dosage: UNK, UNK
     Dates: start: 20080401
  2. PREMARIN [Concomitant]
  3. MULTI-VITAMIN [Concomitant]
  4. DARVOCET [Concomitant]

REACTIONS (1)
  - IMPAIRED HEALING [None]
